FAERS Safety Report 23532739 (Version 2)
Quarter: 2024Q1

REPORT INFORMATION
  Report Type: Report from Study
  Country: AU (occurrence: AU)
  Receive Date: 20240216
  Receipt Date: 20240222
  Transmission Date: 20240410
  Serious: Yes (Other)
  Sender: FDA-Public Use
  Company Number: AU-BAXTER-2024BAX012188

PATIENT
  Age: 83 Year
  Sex: Female
  Weight: 85 kg

DRUGS (24)
  1. CYCLOPHOSPHAMIDE [Suspect]
     Active Substance: CYCLOPHOSPHAMIDE
     Indication: Diffuse large B-cell lymphoma stage I
     Dosage: 400 MG/M2, C1D1 - C6D1, POWDER FOR SOLUTION FOR INJECTION
     Route: 042
     Dates: start: 20220824, end: 20221207
  2. DOXORUBICIN [Suspect]
     Active Substance: DOXORUBICIN
     Indication: Diffuse large B-cell lymphoma stage I
     Dosage: 25 MG/M2, C1D1 - C6D1, SOLUTION FOR INFUSION
     Route: 042
     Dates: start: 20220824, end: 20221207
  3. EPCORITAMAB [Suspect]
     Active Substance: EPCORITAMAB
     Indication: Diffuse large B-cell lymphoma stage I
     Dosage: 0.16 MG, C1D1, PRIMING DOSE
     Route: 058
     Dates: start: 20220824, end: 20220824
  4. EPCORITAMAB [Suspect]
     Active Substance: EPCORITAMAB
     Dosage: 0.8 MG, C1D8, INTERMEDIATE DOSE
     Route: 058
     Dates: start: 20220831, end: 20220831
  5. EPCORITAMAB [Suspect]
     Active Substance: EPCORITAMAB
     Dosage: 48 MG, C1D15 - C8D1, FULL DOSE
     Route: 058
     Dates: start: 20220907, end: 20220928
  6. EPCORITAMAB [Suspect]
     Active Substance: EPCORITAMAB
     Dosage: UNK, C3D1 - C6D1
     Route: 058
     Dates: start: 20221005, end: 20221207
  7. EPCORITAMAB [Suspect]
     Active Substance: EPCORITAMAB
     Dosage: UNK, C7D1 - C8D1
     Route: 058
     Dates: start: 20230111, end: 20230209
  8. EPCORITAMAB [Suspect]
     Active Substance: EPCORITAMAB
     Dosage: 48 MG, CYCLE 8, PRIOR TO THE EVENT ONSET DATE LATEST DOSE
     Route: 065
     Dates: start: 20230209
  9. RITUXIMAB [Suspect]
     Active Substance: RITUXIMAB
     Indication: Diffuse large B-cell lymphoma stage I
     Dosage: 375 MG/M2, C1D1 - C6D1
     Route: 042
     Dates: start: 20220824, end: 20221207
  10. VINCRISTINE [Suspect]
     Active Substance: VINCRISTINE
     Indication: Diffuse large B-cell lymphoma stage I
     Dosage: 1 MG/M2, C1D1 - C6D1
     Route: 042
     Dates: start: 20220824, end: 20221207
  11. PREDNISOLONE [Suspect]
     Active Substance: PREDNISOLONE
     Indication: Diffuse large B-cell lymphoma stage I
     Dosage: 100 MILLIGRAM, QD
     Route: 048
     Dates: start: 20220824, end: 20220828
  12. PREDNISOLONE [Suspect]
     Active Substance: PREDNISOLONE
     Dosage: 100 MILLIGRAM, QD
     Route: 048
     Dates: start: 20220914, end: 20220918
  13. PREDNISOLONE [Suspect]
     Active Substance: PREDNISOLONE
     Dosage: 75 MILLIGRAM, QD
     Route: 048
     Dates: start: 20221005, end: 20221009
  14. PREDNISOLONE [Suspect]
     Active Substance: PREDNISOLONE
     Dosage: 75 MILLIGRAM, QD
     Route: 048
     Dates: start: 20221026, end: 20221030
  15. PREDNISOLONE [Suspect]
     Active Substance: PREDNISOLONE
     Dosage: 75 MILLIGRAM, QD
     Route: 048
     Dates: start: 20221116, end: 20221120
  16. PREDNISOLONE [Suspect]
     Active Substance: PREDNISOLONE
     Dosage: 75 MILLIGRAM, QD
     Route: 048
     Dates: start: 20221207, end: 20221211
  17. LORATADINE [Concomitant]
     Active Substance: LORATADINE
     Dosage: 10 MG, PREMEDICATION AS PER PROTOCOL
     Route: 048
     Dates: start: 20230209, end: 20230209
  18. ACETAMINOPHEN [Concomitant]
     Active Substance: ACETAMINOPHEN
     Dosage: 1 G, PREMEDICATION AS PER PROTOCOL
     Route: 048
     Dates: start: 20230209, end: 20230209
  19. IRBESARTAN [Concomitant]
     Active Substance: IRBESARTAN
     Dosage: UNK (START DATE: 2014), ONGOING
     Route: 065
  20. GLUCOSAMINE [Concomitant]
     Active Substance: GLUCOSAMINE
     Dosage: UNK (START DATE: 2000), ONGOING
     Route: 065
  21. FISH OIL [Concomitant]
     Active Substance: FISH OIL
     Dosage: UNK (START DATE: 2000), ONGOING
     Route: 065
  22. ALLOPURINOL [Concomitant]
     Active Substance: ALLOPURINOL
     Dosage: UNK, ONGOING
     Route: 065
     Dates: start: 20220821
  23. AMOXICILLIN\CLAVULANATE POTASSIUM [Concomitant]
     Active Substance: AMOXICILLIN\CLAVULANATE POTASSIUM
     Dosage: UNK (START DATE: MAY-2023, STOP DATE: JUN-2023)
     Route: 065
  24. PFIZER-BIONTECH COVID-19 VACCINE [Concomitant]
     Active Substance: TOZINAMERAN
     Dosage: UNK (START DATE: AUG-2023, STOP DATE: AUG-2023)
     Route: 065

REACTIONS (1)
  - Lung adenocarcinoma recurrent [Recovered/Resolved]

NARRATIVE: CASE EVENT DATE: 20230719
